FAERS Safety Report 7012670-2 (Version None)
Quarter: 2010Q3

REPORT INFORMATION
  Report Type: 
  Country: None (occurrence: None)
  Receive Date: 20100924
  Receipt Date: 20100914
  Transmission Date: 20110219
  Serious: Yes (Hospitalization)
  Sender: FDA-Public Use
  Company Number: US-ROCHE-727316

PATIENT
  Sex: Female
  Weight: 82 kg

DRUGS (9)
  1. BEVACIZUMAB [Suspect]
     Indication: GLIOBLASTOMA
     Route: 042
     Dates: start: 20100617, end: 20100701
  2. TEMOZOLOMIDE [Suspect]
     Indication: GLIOBLASTOMA
     Dosage: FREQUENCY: EVERY DAY
     Route: 048
     Dates: start: 20100614, end: 20100709
  3. KEPPRA [Concomitant]
  4. PANTOPRAZOLE SODIUM [Concomitant]
     Dosage: REPORTED AS PANTOPRAZOLAM
  5. CRESTOR [Concomitant]
  6. ASTEPRO [Concomitant]
  7. FLONASE [Concomitant]
  8. OXYCODONE [Concomitant]
  9. METOPROLOL TARTRATE [Concomitant]
     Dosage: EPORTED AS MEDOPROLOL

REACTIONS (4)
  - AGITATION [None]
  - CONFUSIONAL STATE [None]
  - CONVULSION [None]
  - THROMBOCYTOPENIA [None]
